FAERS Safety Report 9066234 (Version 1)
Quarter: 2013Q1

REPORT INFORMATION
  Report Type: Spontaneous
  Country: FR (occurrence: FR)
  Receive Date: 20130214
  Receipt Date: 20130214
  Transmission Date: 20140127
  Serious: Yes (Other)
  Sender: FDA-Public Use
  Company Number: FR-BAYER-2013-016048

PATIENT
  Age: 25 Year
  Sex: Female

DRUGS (2)
  1. JASMINE [Suspect]
     Dosage: UNK
     Route: 048
     Dates: start: 2006
  2. COPPER IUD [Concomitant]

REACTIONS (3)
  - Pregnancy on oral contraceptive [Recovered/Resolved]
  - Drug ineffective [None]
  - Abortion spontaneous [None]
